FAERS Safety Report 10051578 (Version 1)
Quarter: 2014Q1

REPORT INFORMATION
  Report Type: Spontaneous
  Country: US (occurrence: None)
  Receive Date: 20140331
  Receipt Date: 20140331
  Transmission Date: 20141002
  Serious: Yes (Death, Hospitalization)
  Sender: FDA-Public Use
  Company Number: 2014P1002449

PATIENT
  Age: 45 Year
  Sex: Female

DRUGS (9)
  1. ESCITALOPRAM [Suspect]
     Indication: DEPRESSION
  2. HYDROMORPHONE [Suspect]
     Indication: HEADACHE
  3. HYDROMORPHONE [Suspect]
     Indication: CONFUSIONAL STATE
  4. DIHYDROERGOTAMINE [Suspect]
     Indication: HEADACHE
     Route: 042
  5. DIHYDROERGOTAMINE [Suspect]
     Indication: CONFUSIONAL STATE
     Route: 042
  6. HYDROCODONE [Suspect]
     Indication: HEAD INJURY
  7. HYDROCODONE [Suspect]
     Indication: INJURY
  8. TETRAHYDROCANNABINOL [Suspect]
  9. UNSPECIFIED ANTICOAGULANT [Concomitant]

REACTIONS (6)
  - Cerebral vasoconstriction [None]
  - Serotonin syndrome [None]
  - International normalised ratio increased [None]
  - Ischaemic cerebral infarction [None]
  - Posterior reversible encephalopathy syndrome [None]
  - Subarachnoid haemorrhage [None]
